FAERS Safety Report 16021760 (Version 1)
Quarter: 2019Q1

REPORT INFORMATION
  Report Type: Spontaneous
  Country: FR (occurrence: FR)
  Receive Date: 20190301
  Receipt Date: 20190301
  Transmission Date: 20190418
  Serious: Yes (Death)
  Sender: FDA-Public Use
  Company Number: FR-ROCHE-2268158

PATIENT
  Age: 76 Year
  Sex: Male
  Weight: 95 kg

DRUGS (13)
  1. DEDROGYL [Suspect]
     Active Substance: CALCIFEDIOL
     Indication: PROPHYLAXIS
     Dosage: UNIT DOSE: 5 [DRP], FORM STRENGTH: 15 MG/ 100 ML
     Route: 048
     Dates: start: 2014, end: 20190116
  2. CELLCEPT [Suspect]
     Active Substance: MYCOPHENOLATE MOFETIL\MYCOPHENOLATE MOFETIL HYDROCHLORIDE
     Indication: MULTIPLE SCLEROSIS
     Route: 048
     Dates: start: 2010, end: 20190116
  3. FAMPYRA [Suspect]
     Active Substance: DALFAMPRIDINE
     Indication: MULTIPLE SCLEROSIS
     Route: 048
     Dates: start: 2013, end: 20190116
  4. ATENOLOL. [Suspect]
     Active Substance: ATENOLOL
     Indication: ATRIAL FIBRILLATION
     Route: 048
     Dates: start: 2006, end: 20190116
  5. OMIX LP [Suspect]
     Active Substance: TAMSULOSIN HYDROCHLORIDE
     Indication: PRODUCT USED FOR UNKNOWN INDICATION
     Dosage: FORM STRENGTH: 0.4 MG, MICROGRANULES
     Route: 048
     Dates: start: 2009, end: 20190116
  6. ATEPADENE [ADENOSINE TRIPHOSPHATE, DISODIUM SALT] [Suspect]
     Active Substance: ADENOSINE TRIPHOSPHATE DISODIUM
     Indication: BACK PAIN
     Route: 048
     Dates: end: 20190116
  7. FLECTOR [Suspect]
     Active Substance: DICLOFENAC EPOLAMINE
     Indication: BACK PAIN
     Dosage: 1 POUR CENT
     Route: 003
     Dates: start: 20190116
  8. DEROXAT [Suspect]
     Active Substance: PAROXETINE HYDROCHLORIDE
     Indication: DEPRESSION
     Route: 048
     Dates: start: 2009, end: 20190116
  9. UVEDOSE [Suspect]
     Active Substance: CHOLECALCIFEROL
     Indication: VITAMIN D DEFICIENCY
     Dosage: 100 000 UI, SOLUTION
     Route: 048
     Dates: end: 20190116
  10. FORLAX [Suspect]
     Active Substance: POLYETHYLENE GLYCOL 4000
     Indication: CONSTIPATION
     Route: 048
     Dates: start: 2009, end: 20190116
  11. DOLIPRANE [Suspect]
     Active Substance: ACETAMINOPHEN
     Indication: BACK PAIN
     Route: 048
     Dates: end: 20190116
  12. LIORESAL [Suspect]
     Active Substance: BACLOFEN
     Indication: MULTIPLE SCLEROSIS
     Route: 048
     Dates: end: 20190116
  13. PREVISCAN (FRANCE) [Suspect]
     Active Substance: FLUINDIONE
     Indication: ATRIAL FIBRILLATION
     Route: 048
     Dates: start: 2006, end: 20190116

REACTIONS (3)
  - Subdural haematoma [Fatal]
  - Brain herniation [Fatal]
  - Intracranial pressure increased [Fatal]

NARRATIVE: CASE EVENT DATE: 20190116
